FAERS Safety Report 4509411-7 (Version None)
Quarter: 2004Q4

REPORT INFORMATION
  Report Type: 
  Country: None (occurrence: None)
  Receive Date: 20041025
  Receipt Date: 20040715
  Transmission Date: 20050328
  Serious: Yes (Hospitalization)
  Sender: FDA-Public Use
  Company Number: US-JNJFOC-20040704467

PATIENT
  Age: 43 Year
  Sex: Male
  Weight: 79.3795 kg

DRUGS (4)
  1. INFLIXIMAB (INFLIXIMAB, RECOMBINANT) LYOPHILIZED POWDER [Suspect]
     Indication: CROHN'S DISEASE
     Dosage: 5 MG/KG, INTRAVENOUS; ONE DOSE IN THE YEAR PRIOR TO TREAT
     Route: 042
     Dates: start: 20030424
  2. METHOTREXATE (METHOTREXTATE) [Concomitant]
  3. FOLIC ACID [Concomitant]
  4. COUMADIN [Concomitant]

REACTIONS (3)
  - DYSPNOEA [None]
  - MUSCLE CRAMP [None]
  - MYALGIA [None]
